FAERS Safety Report 15669118 (Version 1)
Quarter: 2018Q4

REPORT INFORMATION
  Report Type: Spontaneous
  Country: GB (occurrence: GB)
  Receive Date: 20181129
  Receipt Date: 20181129
  Transmission Date: 20190205
  Serious: Yes (Other)
  Sender: FDA-Public Use
  Company Number: GB-ACCORD-094151

PATIENT
  Age: 45 Year
  Sex: Female
  Weight: 62 kg

DRUGS (9)
  1. FLUTICASONE. [Concomitant]
     Active Substance: FLUTICASONE
     Dosage: 1 OR 2 SQUIRTS.
     Route: 045
     Dates: start: 20171020
  2. PROPRANOLOL [Concomitant]
     Active Substance: PROPRANOLOL HYDROCHLORIDE
     Indication: ANXIETY
     Dates: start: 20171123
  3. FLUOXETINE [Concomitant]
     Active Substance: FLUOXETINE HYDROCHLORIDE
     Dosage: MORNING.
     Dates: start: 20171205
  4. LANSOPRAZOLE. [Concomitant]
     Active Substance: LANSOPRAZOLE
     Indication: DYSPEPSIA
     Dates: start: 20171205
  5. GAVISCON ADVANCE [Concomitant]
     Active Substance: POTASSIUM BICARBONATE\SODIUM ALGINATE
     Indication: DYSPEPSIA
     Dates: start: 20171219
  6. DERMOVATE [Concomitant]
     Active Substance: CLOBETASOL
     Dosage: FOR ONE ARMPIT
     Dates: start: 20171128
  7. TACROLIMUS. [Suspect]
     Active Substance: TACROLIMUS
     Indication: LICHEN PLANUS
     Route: 061
     Dates: start: 20171221, end: 20171225
  8. FUCIDIN [Concomitant]
     Active Substance: FUSIDATE SODIUM
     Dates: start: 20171123
  9. FEXOFENADINE/FEXOFENADINE HYDROCHLORIDE [Concomitant]
     Dates: start: 20171219

REACTIONS (2)
  - Dermatitis allergic [Recovering/Resolving]
  - Off label use [Unknown]

NARRATIVE: CASE EVENT DATE: 20171222
